FAERS Safety Report 7476385-9 (Version None)
Quarter: 2011Q2

REPORT INFORMATION
  Report Type: 
  Country: None (occurrence: None)
  Receive Date: 20110512
  Receipt Date: 20110503
  Transmission Date: 20111010
  Serious: Yes (Hospitalization)
  Sender: FDA-Public Use
  Company Number: B0716772A

PATIENT
  Sex: Female

DRUGS (6)
  1. SINEMET [Suspect]
     Indication: PARKINSONISM
     Dosage: 1500MG PER DAY
     Route: 048
     Dates: start: 20091101
  2. SINEMET [Suspect]
     Dosage: 330MG PER DAY
     Route: 048
     Dates: start: 20051201
  3. AZILECT [Suspect]
     Indication: PARKINSONISM
     Dosage: 1MG PER DAY
     Route: 048
     Dates: start: 20100201, end: 20110310
  4. APOMORPHINE [Suspect]
     Indication: PARKINSONISM
     Dosage: 5MG PER DAY
     Route: 048
     Dates: start: 20100727, end: 20110301
  5. REQUIP [Suspect]
     Indication: PARKINSONISM
     Route: 048
     Dates: start: 20040101
  6. STALEVO 100 [Concomitant]
     Route: 065
     Dates: start: 20070201, end: 20091101

REACTIONS (5)
  - ABNORMAL BEHAVIOUR [None]
  - DELIRIUM [None]
  - PSYCHOTIC DISORDER [None]
  - AGITATION [None]
  - HALLUCINATION [None]
